FAERS Safety Report 14531866 (Version 3)
Quarter: 2018Q1

REPORT INFORMATION
  Report Type: Spontaneous
  Country: DE (occurrence: DE)
  Receive Date: 20180214
  Receipt Date: 20180328
  Transmission Date: 20180509
  Serious: Yes (Hospitalization, Other)
  Sender: FDA-Public Use
  Company Number: DE-009507513-1802DEU005637

PATIENT
  Age: 59 Year
  Sex: Male
  Weight: 86 kg

DRUGS (7)
  1. PEGASYS [Suspect]
     Active Substance: PEGINTERFERON ALFA-2A
     Indication: HEPATITIS C
     Dosage: 180 MICROGRAM, WEEKLY
     Dates: start: 20100621
  2. REBETOL [Suspect]
     Active Substance: RIBAVIRIN
     Indication: HEPATITIS C
     Dosage: A FOUR-WEEK-LASTING MONO-THERAPY
     Route: 048
     Dates: start: 200901
  3. REBETOL [Suspect]
     Active Substance: RIBAVIRIN
     Indication: HEPATITIS C
     Dosage: (600 MG-600 MG-200 MG), 4-WEEK-LASTING MONO-THERAPY
     Route: 048
     Dates: start: 20100501, end: 20110413
  4. PEGASYS [Suspect]
     Active Substance: PEGINTERFERON ALFA-2A
     Dosage: 90 MICROGRAM, UNK
     Dates: start: 20101119
  5. PEGASYS [Suspect]
     Active Substance: PEGINTERFERON ALFA-2A
     Dosage: 45 MICROGRAM, UNK
     Dates: start: 20110128, end: 20110211
  6. PEGINTERFERON ALFA-2A. [Suspect]
     Active Substance: PEGINTERFERON ALFA-2A
     Dosage: UNK
     Dates: start: 20100621
  7. PEGINTERFERON ALFA-2A. [Suspect]
     Active Substance: PEGINTERFERON ALFA-2A
     Indication: HEPATITIS C
     Dosage: 180 MICROGRAM, UNK
     Dates: start: 200902

REACTIONS (9)
  - Bronchial carcinoma [Unknown]
  - Lung neoplasm malignant [Unknown]
  - Pancytopenia [Unknown]
  - Incorrect dose administered [Unknown]
  - Product use issue [Unknown]
  - Anaemia [Unknown]
  - Acute hepatic failure [Unknown]
  - Wrong technique in product usage process [Unknown]
  - Inappropriate schedule of drug administration [Unknown]

NARRATIVE: CASE EVENT DATE: 200901
